FAERS Safety Report 12261352 (Version 1)
Quarter: 2016Q2

REPORT INFORMATION
  Report Type: Spontaneous
  Country: US (occurrence: US)
  Receive Date: 20160412
  Receipt Date: 20160412
  Transmission Date: 20160815
  Serious: Yes (Hospitalization, Other)
  Sender: FDA-Public Use
  Company Number: US-009507513-1604USA005902

PATIENT
  Sex: Female

DRUGS (6)
  1. JANUVIA [Suspect]
     Active Substance: SITAGLIPTIN PHOSPHATE
     Indication: DIABETES MELLITUS
     Dosage: ^50 MG I ONCE A DAY IN THE MORNING^
     Route: 048
     Dates: end: 2016
  2. SIMVASTATIN TABLETS, USP [Concomitant]
     Active Substance: SIMVASTATIN
  3. POTASSIUM (UNSPECIFIED) [Concomitant]
     Active Substance: POTASSIUM
  4. GLIPIZIDE. [Concomitant]
     Active Substance: GLIPIZIDE
  5. LANTUS [Concomitant]
     Active Substance: INSULIN GLARGINE
  6. WARFARIN [Concomitant]
     Active Substance: WARFARIN

REACTIONS (3)
  - Fatigue [Recovering/Resolving]
  - Dyspnoea [Recovering/Resolving]
  - Heart rate increased [Recovering/Resolving]
